FAERS Safety Report 23432245 (Version 2)
Quarter: 2024Q1

REPORT INFORMATION
  Report Type: Spontaneous
  Country: SE (occurrence: SE)
  Receive Date: 20240123
  Receipt Date: 20240124
  Transmission Date: 20240410
  Serious: Yes (Other)
  Sender: FDA-Public Use
  Company Number: None

PATIENT
  Age: 48 Year
  Sex: Male

DRUGS (2)
  1. FIDAXOMICIN [Suspect]
     Active Substance: FIDAXOMICIN
     Indication: Gastroenteritis clostridial
     Dosage: 1X2 I 10 DAGAR
     Route: 048
     Dates: start: 20231128, end: 20231206
  2. NYSTATIN [Concomitant]
     Active Substance: NYSTATIN
     Dosage: 1MLX4
     Route: 048
     Dates: start: 20231122, end: 20231205

REACTIONS (2)
  - Cutaneous vasculitis [Recovered/Resolved]
  - Off label use [Unknown]

NARRATIVE: CASE EVENT DATE: 20231205
